FAERS Safety Report 5574385-7 (Version None)
Quarter: 2008Q1

REPORT INFORMATION
  Report Type: 
  Country: None (occurrence: None)
  Receive Date: 20071226
  Receipt Date: 20071226
  Transmission Date: 20080703
  Serious: No
  Sender: FDA-Public Use
  Company Number: None

PATIENT

DRUGS (1)
  1. HEPARIN LOCK-FLUSH [Suspect]

REACTIONS (2)
  - DEVICE RELATED INFECTION [None]
  - SERRATIA BACTERAEMIA [None]
